FAERS Safety Report 5456825-7 (Version None)
Quarter: 2007Q3

REPORT INFORMATION
  Report Type: 
  Country: None (occurrence: None)
  Receive Date: 20070918
  Receipt Date: 20061127
  Transmission Date: 20080115
  Serious: No
  Sender: FDA-Public Use
  Company Number: US-ASTRAZENECA-2006UW26264

PATIENT
  Age: 49 Year
  Sex: Female
  Weight: 58.5 kg

DRUGS (5)
  1. SEROQUEL [Suspect]
     Indication: BIPOLAR DISORDER
     Route: 048
     Dates: start: 20060801
  2. ATIVAN [Concomitant]
  3. CLONAZEPAM [Concomitant]
  4. HERBAL SLEEP AID [Concomitant]
  5. KLONOPIN [Concomitant]

REACTIONS (7)
  - ASTHENIA [None]
  - BALANCE DISORDER [None]
  - GINGIVAL BLEEDING [None]
  - GINGIVAL SWELLING [None]
  - HEAD DISCOMFORT [None]
  - RASH [None]
  - TREMOR [None]
